FAERS Safety Report 25843626 (Version 1)
Quarter: 2025Q3

REPORT INFORMATION
  Report Type: Report from Study
  Country: CA (occurrence: CA)
  Receive Date: 20250924
  Receipt Date: 20250924
  Transmission Date: 20251020
  Serious: Yes (Hospitalization, Other)
  Sender: HLS THERAPEUTICS
  Company Number: CA-HLS-202502443

PATIENT
  Age: 72 Year
  Sex: Female

DRUGS (18)
  1. CLOZARIL [Suspect]
     Active Substance: CLOZAPINE
     Indication: Schizophrenia
     Route: 048
  2. LORAZEPAM [Concomitant]
     Active Substance: LORAZEPAM
     Indication: Product used for unknown indication
     Route: 060
  3. MIRTAZAPINE [Concomitant]
     Active Substance: MIRTAZAPINE
     Indication: Product used for unknown indication
     Dosage: HS (AT BED TIME)
     Route: 048
  4. VITAMIN B12 [Concomitant]
     Active Substance: CYANOCOBALAMIN
     Indication: Product used for unknown indication
     Route: 048
  5. ROSUVASTATIN [Concomitant]
     Active Substance: ROSUVASTATIN
     Indication: Product used for unknown indication
     Route: 048
  6. PANTOPRAZOLE [Concomitant]
     Active Substance: PANTOPRAZOLE
     Indication: Product used for unknown indication
     Route: 048
  7. METFORMIN [Concomitant]
     Active Substance: METFORMIN HYDROCHLORIDE
     Indication: Product used for unknown indication
     Dosage: 1000 MG BID (500 MG TABLET)
     Route: 048
  8. levothyroxlne [Concomitant]
     Indication: Product used for unknown indication
     Route: 048
  9. FERROUS FUMARATE [Concomitant]
     Active Substance: FERROUS FUMARATE
     Indication: Product used for unknown indication
     Dosage: 300 MG 100 MG ELEMENTAL IRON MAY TAKE WITH FOOD
     Route: 048
  10. FENOFIBRATE [Concomitant]
     Active Substance: FENOFIBRATE
     Indication: Product used for unknown indication
     Dosage: PO DAILY WITH BREAKFAST AND FOOD
     Route: 048
  11. ESCITALOPRAM [Concomitant]
     Active Substance: ESCITALOPRAM OXALATE
     Indication: Product used for unknown indication
     Route: 048
  12. JARDIANCE [Concomitant]
     Active Substance: EMPAGLIFLOZIN
     Indication: Product used for unknown indication
     Route: 048
  13. CANDESARTAN [Concomitant]
     Active Substance: CANDESARTAN
     Indication: Product used for unknown indication
     Route: 048
  14. ARIPIPRAZOLE [Concomitant]
     Active Substance: ARIPIPRAZOLE
     Indication: Product used for unknown indication
     Route: 048
  15. ATORVASTATIN [Concomitant]
     Active Substance: ATORVASTATIN
     Indication: Product used for unknown indication
     Route: 065
  16. ZOPICLONE [Concomitant]
     Active Substance: ZOPICLONE
     Indication: Product used for unknown indication
     Route: 048
  17. TYLENOL [Concomitant]
     Active Substance: ACETAMINOPHEN
     Indication: Product used for unknown indication
     Route: 048
  18. MELATONIN [Concomitant]
     Active Substance: MELATONIN
     Indication: Product used for unknown indication
     Dosage: AT BED TIME
     Route: 048

REACTIONS (31)
  - Somnolence [Unknown]
  - Orthostatic hypotension [Unknown]
  - Joint swelling [Unknown]
  - Abdominal distension [Unknown]
  - Disturbance in attention [Unknown]
  - Memory impairment [Unknown]
  - Constipation [Unknown]
  - Depressed mood [Unknown]
  - Dizziness [Unknown]
  - Dry mouth [Unknown]
  - Atrioventricular block [Unknown]
  - Fatigue [Unknown]
  - Dizziness postural [Unknown]
  - Lymphopenia [Unknown]
  - Treatment noncompliance [Unknown]
  - Musculoskeletal stiffness [Unknown]
  - Drooling [Unknown]
  - Palpitations [Unknown]
  - Paraesthesia [Unknown]
  - Electrocardiogram PR shortened [Unknown]
  - Restlessness [Unknown]
  - Bundle branch block right [Unknown]
  - Rhinorrhoea [Unknown]
  - Photosensitivity reaction [Unknown]
  - Tremor [Unknown]
  - Hypokinesia [Unknown]
  - Suicidal ideation [Recovered/Resolved]
  - Muscle tightness [Unknown]
  - Chromaturia [Unknown]
  - Weight decreased [Unknown]
  - Hallucination, auditory [Unknown]

NARRATIVE: CASE EVENT DATE: 20250909
